FAERS Safety Report 9356371 (Version 1)
Quarter: 2013Q2

REPORT INFORMATION
  Report Type: Spontaneous
  Country: CO (occurrence: CO)
  Receive Date: 20130619
  Receipt Date: 20130619
  Transmission Date: 20140414
  Serious: Yes (Hospitalization, Other)
  Sender: FDA-Public Use
  Company Number: CO-ABBOTT-13P-036-1106326-00

PATIENT
  Age: 51 Year
  Sex: Female
  Weight: 70 kg

DRUGS (7)
  1. HUMIRA [Suspect]
     Indication: RHEUMATOID ARTHRITIS
     Route: 058
     Dates: start: 20120102, end: 20130308
  2. SPIRONOLACTONE [Concomitant]
     Indication: PRODUCT USED FOR UNKNOWN INDICATION
  3. CALCIUM CARBONATE [Concomitant]
     Indication: PRODUCT USED FOR UNKNOWN INDICATION
  4. LEVOTHYROXINE [Concomitant]
     Indication: PRODUCT USED FOR UNKNOWN INDICATION
  5. CABERGOLINE [Concomitant]
     Indication: PRODUCT USED FOR UNKNOWN INDICATION
  6. FLUDROCORTISONE [Concomitant]
     Indication: PRODUCT USED FOR UNKNOWN INDICATION
  7. IMIPRAMINE [Concomitant]
     Indication: PRODUCT USED FOR UNKNOWN INDICATION

REACTIONS (6)
  - Hypotension [Unknown]
  - Aphasia [Unknown]
  - Syncope [Unknown]
  - Pain [Unknown]
  - Renal failure [Unknown]
  - Nervous system disorder [Unknown]
